FAERS Safety Report 9914226 (Version 1)
Quarter: 2014Q1

REPORT INFORMATION
  Report Type: Spontaneous
  Country: US (occurrence: US)
  Receive Date: 20140220
  Receipt Date: 20140220
  Transmission Date: 20141002
  Serious: Yes (Other)
  Sender: FDA-Public Use
  Company Number: US-BAYER-2014-025584

PATIENT
  Sex: Female

DRUGS (1)
  1. STIVARGA [Suspect]
     Dosage: UNK
     Route: 048

REACTIONS (4)
  - Cystitis haemorrhagic [Not Recovered/Not Resolved]
  - Polyuria [Not Recovered/Not Resolved]
  - Urinary incontinence [None]
  - Burning sensation [Not Recovered/Not Resolved]
